FAERS Safety Report 6953634-4 (Version None)
Quarter: 2010Q3

REPORT INFORMATION
  Report Type: 
  Country: None (occurrence: None)
  Receive Date: 20100829
  Receipt Date: 20100610
  Transmission Date: 20110219
  Serious: No
  Sender: FDA-Public Use
  Company Number: US-ABBOTT-10P-163-0651689-00

PATIENT
  Sex: Male
  Weight: 74.91 kg

DRUGS (6)
  1. NIASPAN [Suspect]
     Indication: BLOOD TRIGLYCERIDES
  2. DIGITALIS TAB [Concomitant]
     Indication: ATRIAL FIBRILLATION
  3. CARDIZEM [Concomitant]
     Indication: PRODUCT USED FOR UNKNOWN INDICATION
  4. METOPROLOL [Concomitant]
     Indication: PRODUCT USED FOR UNKNOWN INDICATION
     Dosage: 50 MG IN AM AND  25 MG AT HS
  5. WARFARIN SODIUM [Concomitant]
     Indication: ATRIAL FIBRILLATION
  6. AVADAR [Concomitant]
     Indication: PROSTATIC DISORDER
     Dosage: PROSTATE

REACTIONS (1)
  - BLOOD GLUCOSE INCREASED [None]
